FAERS Safety Report 14028608 (Version 1)
Quarter: 2017Q3

REPORT INFORMATION
  Report Type: Spontaneous
  Country: US (occurrence: US)
  Receive Date: 20170930
  Receipt Date: 20170930
  Transmission Date: 20171128
  Serious: No
  Sender: FDA-Public Use
  Company Number: US-SA-2017SA058427

PATIENT
  Age: 54 Year
  Sex: Female

DRUGS (29)
  1. AUBAGIO [Suspect]
     Active Substance: TERIFLUNOMIDE
     Route: 065
  2. VITAMIN C [Concomitant]
     Active Substance: ASCORBIC ACID
  3. SEROQUEL [Concomitant]
     Active Substance: QUETIAPINE FUMARATE
  4. ATENOLOL. [Concomitant]
     Active Substance: ATENOLOL
  5. ADVAIR DISKUS [Concomitant]
     Active Substance: FLUTICASONE PROPIONATE\SALMETEROL XINAFOATE
     Dosage: 250/50; SPRAY AND INHALATION
  6. AMBIEN CR [Concomitant]
     Active Substance: ZOLPIDEM TARTRATE
  7. NYSTATIN. [Concomitant]
     Active Substance: NYSTATIN
  8. MAGNESIUM OXIDE. [Concomitant]
     Active Substance: MAGNESIUM OXIDE
  9. OMEPRAZOLE. [Concomitant]
     Active Substance: OMEPRAZOLE
  10. PROVIGIL [Concomitant]
     Active Substance: MODAFINIL
  11. DONEPEZIL. [Concomitant]
     Active Substance: DONEPEZIL
  12. CIPROFLOXACIN. [Concomitant]
     Active Substance: CIPROFLOXACIN
  13. LYRICA [Concomitant]
     Active Substance: PREGABALIN
  14. TOPIRAMATE. [Concomitant]
     Active Substance: TOPIRAMATE
  15. CYMBALTA [Concomitant]
     Active Substance: DULOXETINE HYDROCHLORIDE
  16. FIBERCON [Concomitant]
     Active Substance: CALCIUM POLYCARBOPHIL
  17. MAGNESIUM [Concomitant]
     Active Substance: MAGNESIUM
  18. CALCIUM [Concomitant]
     Active Substance: CALCIUM
  19. ASPIRIN. [Concomitant]
     Active Substance: ASPIRIN
     Dosage: CHEW
  20. CELEBREX [Concomitant]
     Active Substance: CELECOXIB
  21. WELLBUTRIN [Concomitant]
     Active Substance: BUPROPION HYDROCHLORIDE
  22. SUDAFED [Concomitant]
     Active Substance: PSEUDOEPHEDRINE HYDROCHLORIDE
     Dosage: NASAL TAB DECONGES
  23. CYMBALTA [Concomitant]
     Active Substance: DULOXETINE HYDROCHLORIDE
  24. COLACE [Concomitant]
     Active Substance: DOCUSATE SODIUM
  25. NITROFURANTOIN. [Concomitant]
     Active Substance: NITROFURANTOIN
  26. AMPYRA [Suspect]
     Active Substance: DALFAMPRIDINE
     Indication: MULTIPLE SCLEROSIS
     Route: 048
     Dates: start: 201005
  27. NORTRIPTYLINE HYDROCHLORIDE. [Concomitant]
     Active Substance: NORTRIPTYLINE HYDROCHLORIDE
  28. FLUCONAZOLE. [Concomitant]
     Active Substance: FLUCONAZOLE
  29. BUPROPION HYDROCHLORIDE. [Concomitant]
     Active Substance: BUPROPION HYDROCHLORIDE

REACTIONS (1)
  - Drug ineffective [Unknown]
